FAERS Safety Report 7190585-7 (Version None)
Quarter: 2010Q4

REPORT INFORMATION
  Report Type: 
  Country: None (occurrence: None)
  Receive Date: 20101221
  Receipt Date: 20101221
  Transmission Date: 20110411
  Serious: Yes (Life-Threatening, Hospitalization, Disabling, Congenital Anomaly)
  Sender: FDA-Public Use
  Company Number: None

PATIENT
  Sex: Male
  Weight: 3.1752 kg

DRUGS (1)
  1. EFFEXOR [Suspect]
     Indication: DEPRESSION
     Dosage: 150MG 1X DAILY PO
     Route: 048
     Dates: start: 20030101, end: 20101216

REACTIONS (11)
  - ANOMALY OF EXTERNAL EAR CONGENITAL [None]
  - ASPIRATION [None]
  - COLLAPSE OF LUNG [None]
  - EAR MALFORMATION [None]
  - FEEDING DISORDER NEONATAL [None]
  - GASTROOESOPHAGEAL REFLUX DISEASE [None]
  - LUNG DISORDER [None]
  - LUNG INFECTION [None]
  - MATERNAL DRUGS AFFECTING FOETUS [None]
  - MICROTIA [None]
  - TRACHEOMALACIA [None]
